FAERS Safety Report 8153317-1 (Version None)
Quarter: 2012Q1

REPORT INFORMATION
  Report Type: 
  Country: None (occurrence: None)
  Receive Date: 20120103
  Receipt Date: 20111030
  Transmission Date: 20120608
  Serious: No
  Sender: FDA-Public Use
  Company Number: AE-2011-002896

PATIENT
  Age: 50 Year
  Sex: Female
  Weight: 58.514 kg

DRUGS (7)
  1. LEVOXYL [Concomitant]
  2. IBUPROFEN [Concomitant]
  3. WELLBUTRIN [Concomitant]
  4. INCIVEK [Suspect]
     Dosage: 2250 MG (750 MG,1 IN 8 HR),ORAL
     Route: 048
     Dates: start: 20111028
  5. RIBAVIRIN [Concomitant]
  6. CLONAZEPAM [Concomitant]
  7. PEGASYS [Concomitant]

REACTIONS (5)
  - CHILLS [None]
  - NAUSEA [None]
  - HEADACHE [None]
  - RASH [None]
  - DYSGEUSIA [None]
